FAERS Safety Report 5642229-0 (Version None)
Quarter: 2008Q1

REPORT INFORMATION
  Report Type: 
  Country: None (occurrence: None)
  Receive Date: 20080225
  Receipt Date: 20080213
  Transmission Date: 20080703
  Serious: Yes (Other)
  Sender: FDA-Public Use
  Company Number: 45237

PATIENT
  Age: 11 Year
  Sex: Female

DRUGS (3)
  1. METHOTREXATE [Suspect]
     Indication: CROHN'S DISEASE
     Dosage: 0.6 ML - WEEKLY - SUBCUTANEOUS
     Route: 058
  2. NEXIUM [Concomitant]
  3. FOLIC ACID [Concomitant]

REACTIONS (1)
  - MEDICATION ERROR [None]
